FAERS Safety Report 8924634 (Version 1)
Quarter: 2012Q4

REPORT INFORMATION
  Report Type: 
  Country: FI (occurrence: FI)
  Receive Date: 20121126
  Receipt Date: 20121126
  Transmission Date: 20130627
  Serious: Yes (Other)
  Sender: FDA-Public Use
  Company Number: FI-ROCHE-551543

PATIENT
  Age: 79 Year
  Sex: Female

DRUGS (3)
  1. AVASTIN [Suspect]
     Indication: AGE-RELATED MACULAR DEGENERATION
     Dosage: FORM: INFUSION CONCENTRATE Form Strength=25 MG/ML
     Route: 050
     Dates: start: 200702, end: 200702
  2. AVASTIN [Suspect]
     Indication: OFF LABEL USE
     Dosage: Form Strength=25 MG/ML
     Route: 031
     Dates: start: 20070420, end: 20070420
  3. VITALUX [Concomitant]
     Indication: AGE-RELATED MACULAR DEGENERATION
     Dosage: DRUG NAME: VITALULUX-AZ
     Route: 048

REACTIONS (1)
  - Autoimmune hepatitis [Not Recovered/Not Resolved]
